FAERS Safety Report 7791094-4 (Version None)
Quarter: 2011Q4

REPORT INFORMATION
  Report Type: 
  Country: None (occurrence: None)
  Receive Date: 20111003
  Receipt Date: 20110922
  Transmission Date: 20120403
  Serious: No
  Sender: FDA-Public Use
  Company Number: US-BIOGENIDEC-2011BI018691

PATIENT
  Sex: Female

DRUGS (1)
  1. TYSABRI [Suspect]
     Indication: MULTIPLE SCLEROSIS
     Route: 042
     Dates: start: 20090403, end: 20110513

REACTIONS (9)
  - ANIMAL BITE [None]
  - DYSPNOEA [None]
  - NASAL DISCOMFORT [None]
  - URTICARIA [None]
  - CHEST PAIN [None]
  - WHEEZING [None]
  - MULTIPLE ALLERGIES [None]
  - HYPERSENSITIVITY [None]
  - DIZZINESS [None]
